FAERS Safety Report 7943713-7 (Version None)
Quarter: 2011Q4

REPORT INFORMATION
  Report Type: 
  Country: None (occurrence: None)
  Receive Date: 20111128
  Receipt Date: 20111118
  Transmission Date: 20120403
  Serious: Yes (Other)
  Sender: FDA-Public Use
  Company Number: US-ABBOTT-11P-163-0876074-00

PATIENT
  Age: 37 Year
  Sex: Female

DRUGS (3)
  1. HUMIRA [Suspect]
     Indication: CROHN'S DISEASE
     Dates: start: 20110920
  2. PERCOCET [Concomitant]
     Indication: PAIN
     Dosage: 10/325MG EVERY 4 HOURS
  3. LORTAB [Concomitant]
     Indication: PAIN
     Dosage: 2-5MG TABS EVERY 4-6 HOURS

REACTIONS (1)
  - ENDOMETRIOSIS [None]
